FAERS Safety Report 13877787 (Version 1)
Quarter: 2017Q3

REPORT INFORMATION
  Report Type: Spontaneous
  Country: US (occurrence: US)
  Receive Date: 20170817
  Receipt Date: 20170817
  Transmission Date: 20171127
  Serious: No
  Sender: FDA-Public Use
  Company Number: US-HERITAGE PHARMACEUTICALS-2016HTG00252

PATIENT
  Age: 68 Year
  Sex: Male
  Weight: 88.44 kg

DRUGS (7)
  1. LISINOPRIL. [Concomitant]
     Active Substance: LISINOPRIL
  2. PRILOSEC [Concomitant]
     Active Substance: OMEPRAZOLE MAGNESIUM
  3. LUMIGAN [Concomitant]
     Active Substance: BIMATOPROST
     Dosage: UNK, 1X/DAY
     Route: 047
  4. ACETAZOLAMIDE. [Suspect]
     Active Substance: ACETAZOLAMIDE
     Indication: GLAUCOMA
     Dosage: 500 MG, 2X/DAY
     Route: 048
     Dates: start: 20160808, end: 20160813
  5. ACETAZOLAMIDE. [Suspect]
     Active Substance: ACETAZOLAMIDE
     Dosage: 500 MG, 1X/DAY
     Route: 048
     Dates: start: 201608, end: 201608
  6. AMLODIPINE [Concomitant]
     Active Substance: AMLODIPINE BESYLATE
  7. COMBIGAN [Concomitant]
     Active Substance: BRIMONIDINE TARTRATE\TIMOLOL MALEATE
     Dosage: UNK UNK, 3X/DAY
     Route: 047

REACTIONS (7)
  - Abdominal pain [Recovered/Resolved]
  - Fatigue [Unknown]
  - Vision blurred [Recovered/Resolved]
  - Intraocular pressure increased [Unknown]
  - Heart rate irregular [Recovered/Resolved]
  - Paraesthesia [Recovered/Resolved]
  - Dizziness [Recovered/Resolved]

NARRATIVE: CASE EVENT DATE: 2016
